FAERS Safety Report 6026393-X (Version None)
Quarter: 2009Q1

REPORT INFORMATION
  Report Type: 
  Country: None (occurrence: None)
  Receive Date: 20090102
  Receipt Date: 20081229
  Transmission Date: 20090719
  Serious: Yes (Death, Hospitalization, Other)
  Sender: FDA-Public Use
  Company Number: PHHY2008GB31630

PATIENT
  Sex: Female

DRUGS (3)
  1. CLOZARIL [Suspect]
     Indication: PARKINSON'S DISEASE
     Dosage: UNK
     Dates: start: 20081104
  2. CLOZARIL [Suspect]
     Indication: PSYCHOTIC DISORDER
  3. CLOZARIL [Suspect]
     Indication: HALLUCINATION

REACTIONS (4)
  - ENDOMETRIAL CANCER [None]
  - FALL [None]
  - FEMORAL NECK FRACTURE [None]
  - PARKINSON'S DISEASE [None]
